FAERS Safety Report 18534185 (Version 3)
Quarter: 2021Q1

REPORT INFORMATION
  Report Type: Spontaneous
  Country: JP (occurrence: JP)
  Receive Date: 20201123
  Receipt Date: 20210120
  Transmission Date: 20210419
  Serious: Yes (Hospitalization)
  Sender: FDA-Public Use
  Company Number: JP-ASTRAZENECA-2020SF50652

PATIENT
  Age: 13227 Day
  Sex: Female
  Weight: 44 kg

DRUGS (2)
  1. HUMALOG [Concomitant]
     Active Substance: INSULIN LISPRO
     Indication: FULMINANT TYPE 1 DIABETES MELLITUS
     Dosage: DOSE UNKNOW, USUING INSULIN PUMP
     Route: 058
     Dates: start: 20191119
  2. FORXIGA [Suspect]
     Active Substance: DAPAGLIFLOZIN
     Indication: FULMINANT TYPE 1 DIABETES MELLITUS
     Route: 048
     Dates: start: 20200501, end: 20201108

REACTIONS (1)
  - Ketoacidosis [Recovered/Resolved]

NARRATIVE: CASE EVENT DATE: 20201106
